FAERS Safety Report 17662546 (Version 1)
Quarter: 2020Q2

REPORT INFORMATION
  Report Type: Spontaneous
  Country: AU (occurrence: AU)
  Receive Date: 20200413
  Receipt Date: 20200413
  Transmission Date: 20200713
  Serious: Yes (Hospitalization)
  Sender: FDA-Public Use
  Company Number: AU-JNJFOC-20200403080

PATIENT
  Age: 23 Year
  Sex: Female
  Weight: 60 kg

DRUGS (6)
  1. INVEGA SUSTENNA [Suspect]
     Active Substance: PALIPERIDONE PALMITATE
     Indication: SUBSTANCE-INDUCED PSYCHOTIC DISORDER
     Route: 030
  2. FLUOXETINE [Concomitant]
     Active Substance: FLUOXETINE HYDROCHLORIDE
     Indication: SUBSTANCE-INDUCED PSYCHOTIC DISORDER
  3. PALIPERIDONE. [Concomitant]
     Active Substance: PALIPERIDONE
     Route: 048
  4. INVEGA SUSTENNA [Suspect]
     Active Substance: PALIPERIDONE PALMITATE
  5. INVEGA SUSTENNA [Suspect]
     Active Substance: PALIPERIDONE PALMITATE
  6. PALIPERIDONE. [Concomitant]
     Active Substance: PALIPERIDONE
     Indication: SUBSTANCE-INDUCED PSYCHOTIC DISORDER
     Route: 048

REACTIONS (4)
  - Hallucination, auditory [Unknown]
  - Off label use [Unknown]
  - Product use in unapproved indication [Unknown]
  - Product administered at inappropriate site [Unknown]
